FAERS Safety Report 6626563-3 (Version None)
Quarter: 2010Q1

REPORT INFORMATION
  Report Type: 
  Country: None (occurrence: None)
  Receive Date: 20100309
  Receipt Date: 20100309
  Transmission Date: 20100710
  Serious: No
  Sender: FDA-Public Use
  Company Number: None

PATIENT

DRUGS (2)
  1. REGLAN [Suspect]
  2. ZOFRAN [Suspect]

REACTIONS (4)
  - DEHYDRATION [None]
  - FAECAL VOLUME INCREASED [None]
  - URINE OUTPUT INCREASED [None]
  - WEIGHT DECREASED [None]
